FAERS Safety Report 5280425-5 (Version None)
Quarter: 2007Q1

REPORT INFORMATION
  Report Type: 
  Country: None (occurrence: None)
  Receive Date: 20061229
  Receipt Date: 20060824
  Transmission Date: 20070707
  Serious: Yes (Other)
  Sender: FDA-Public Use
  Company Number: 2006UW16815

PATIENT
  Age: 66 Year
  Sex: Female
  Weight: 66.224 kg

DRUGS (10)
  1. CRESTOR [Suspect]
     Indication: BLOOD CHOLESTEROL INCREASED
     Dosage: 5 MG; PO
     Route: 048
     Dates: start: 20060701, end: 20060801
  2. CALCIUM [Concomitant]
  3. GLUCOSAMINE [Concomitant]
  4. GENSING [Concomitant]
  5. FISH OIL [Concomitant]
  6. PRILOSEC [Concomitant]
  7. GAVISCON [Concomitant]
  8. NORVASC [Concomitant]
  9. ZIAC [Concomitant]
  10. ZETIA [Concomitant]

REACTIONS (6)
  - ASTHENIA [None]
  - CHEST PAIN [None]
  - HYPERHIDROSIS [None]
  - MYALGIA [None]
  - OEDEMA PERIPHERAL [None]
  - PAIN IN EXTREMITY [None]
